FAERS Safety Report 4421359-5 (Version None)
Quarter: 2004Q3

REPORT INFORMATION
  Report Type: 
  Country: None (occurrence: None)
  Receive Date: 20040804
  Receipt Date: 20040722
  Transmission Date: 20050211
  Serious: Yes (Hospitalization)
  Sender: FDA-Public Use
  Company Number: 04P-167-0267829-00

PATIENT
  Sex: Female

DRUGS (14)
  1. HUMIRA [Suspect]
     Dosage: 40 MG, SUBCUTANEOUS
     Route: 058
  2. LEVOTHYROXINE SODIUM [Concomitant]
  3. BISOPROLOL FUMARATE [Concomitant]
  4. FUROSEMIDE [Concomitant]
  5. PENDOPRIL [Concomitant]
  6. ENOXAPAM [Concomitant]
  7. ATORVASTATIN [Concomitant]
  8. DILTIAZEM HYDROCHLORIDE [Concomitant]
  9. CANDESARTAN [Concomitant]
  10. POXAZOCIN [Concomitant]
  11. NICORANDIL [Concomitant]
  12. MST SR [Concomitant]
  13. LANSOPRAZOLE [Concomitant]
  14. NITROGLYCERIN [Concomitant]

REACTIONS (4)
  - DYSPHAGIA [None]
  - FEELING ABNORMAL [None]
  - HEADACHE [None]
  - HYPERTENSION [None]
